FAERS Safety Report 6028594-3 (Version None)
Quarter: 2009Q1

REPORT INFORMATION
  Report Type: 
  Country: None (occurrence: None)
  Receive Date: 20090102
  Receipt Date: 20081219
  Transmission Date: 20090719
  Serious: Yes (Other)
  Sender: FDA-Public Use
  Company Number: 2008SP025848

PATIENT
  Sex: Male

DRUGS (5)
  1. TEMODAL [Suspect]
     Indication: GLIOBLASTOMA
     Dosage: 75 MG/M2; QD; PO
     Route: 048
     Dates: start: 20080930, end: 20081024
  2. DIFFU K [Concomitant]
  3. KEPPRA 500 [Concomitant]
  4. STILNOX [Concomitant]
  5. MEDROL [Concomitant]

REACTIONS (4)
  - ABDOMINAL PAIN [None]
  - ALANINE AMINOTRANSFERASE INCREASED [None]
  - ASPARTATE AMINOTRANSFERASE INCREASED [None]
  - OCULAR DISCOMFORT [None]
